FAERS Safety Report 9177293 (Version 1)
Quarter: 2013Q1

REPORT INFORMATION
  Report Type: Spontaneous
  Country: FR (occurrence: None)
  Receive Date: 20130319
  Receipt Date: 20130319
  Transmission Date: 20140127
  Serious: Yes (Other)
  Sender: FDA-Public Use
  Company Number: 220799

PATIENT
  Sex: Female

DRUGS (1)
  1. INNOHEP (TINZAPARIN SODIUM) [Suspect]
     Indication: EMBOLISM
     Dosage: CURATIVE DOSAGE (NOS)
     Route: 058

REACTIONS (2)
  - Thrombosis [None]
  - Off label use [None]
